FAERS Safety Report 20155569 (Version 1)
Quarter: 2022Q1

REPORT INFORMATION
  Report Type: Spontaneous
  Country: US (occurrence: None)
  Receive Date: 20211206
  Receipt Date: 20211206
  Transmission Date: 20220423
  Serious: Yes (Life-Threatening, Hospitalization, Disabling, Other)
  Sender: FDA-Public Use
  Company Number: None

PATIENT
  Age: 6 Year
  Sex: Female
  Weight: 16.7 kg

DRUGS (2)
  1. MUCINEX CHILDRENS FREEFROM COUGH AND MUCUS [Suspect]
     Active Substance: DEXTROMETHORPHAN HYDROBROMIDE\GUAIFENESIN
     Indication: Viral infection
     Dosage: FREQUENCY : EVERY 4 HOURS;?
     Route: 048
     Dates: start: 20211023, end: 20211027
  2. HYLANDS BABY COUGH SYRUP [Suspect]
     Active Substance: HOMEOPATHICS

REACTIONS (1)
  - Seizure [None]

NARRATIVE: CASE EVENT DATE: 20211029
